FAERS Safety Report 9829964 (Version 1)
Quarter: 2014Q1

REPORT INFORMATION
  Report Type: Spontaneous
  Country: FR (occurrence: FR)
  Receive Date: 20140120
  Receipt Date: 20140120
  Transmission Date: 20141002
  Serious: Yes (Death)
  Sender: FDA-Public Use
  Company Number: FR-009507513-1401FRA006217

PATIENT
  Age: 91 Year
  Sex: Female

DRUGS (2)
  1. TIENAM 500MG/500MG, POUDRE POUR PERFUSION [Suspect]
     Indication: BACTERIAL SEPSIS
     Dosage: UNK
     Route: 042
     Dates: start: 20131124, end: 20131128
  2. CIFLOX (CIPROFLOXACIN HYDROCHLORIDE) [Suspect]
     Indication: BACTERIAL SEPSIS
     Dosage: UNK
     Dates: start: 20131124, end: 20131124

REACTIONS (2)
  - Septic shock [Fatal]
  - Pancytopenia [Fatal]
